FAERS Safety Report 7198945-5 (Version None)
Quarter: 2010Q4

REPORT INFORMATION
  Report Type: 
  Country: None (occurrence: None)
  Receive Date: 20101227
  Receipt Date: 20101217
  Transmission Date: 20110411
  Serious: Yes (Other)
  Sender: FDA-Public Use
  Company Number: US-BRISTOL-MYERS SQUIBB COMPANY-15460918

PATIENT
  Age: 29 Year
  Sex: Male
  Weight: 100 kg

DRUGS (6)
  1. WARFARIN SODIUM [Suspect]
  2. ENOXAPARIN SODIUM [Suspect]
  3. CLONAZEPAM [Suspect]
  4. OXYCODONE [Suspect]
  5. AMPHETAMINE SULFATE [Suspect]
  6. DEXTROAMPHETAMINE [Suspect]

REACTIONS (3)
  - INTERNATIONAL NORMALISED RATIO INCREASED [None]
  - PULMONARY EMBOLISM [None]
  - SUICIDE ATTEMPT [None]
